FAERS Safety Report 7297812-6 (Version None)
Quarter: 2011Q1

REPORT INFORMATION
  Report Type: 
  Country: None (occurrence: None)
  Receive Date: 20110217
  Receipt Date: 20110209
  Transmission Date: 20110831
  Serious: Yes (Other)
  Sender: FDA-Public Use
  Company Number: GB-ELI_LILLY_AND_COMPANY-GB201012001575

PATIENT
  Age: 72 Year
  Sex: Male
  Weight: 113 kg

DRUGS (7)
  1. FELODIPINE [Concomitant]
  2. BYETTA [Suspect]
     Dosage: 10 UG, 2/D
     Route: 058
     Dates: start: 20091023
  3. DOXAZOSIN [Concomitant]
  4. METFORMIN HCL [Concomitant]
  5. RAMIPRIL [Concomitant]
  6. BENDROFLUAZIDE [Concomitant]
  7. GLICLAZIDE [Concomitant]

REACTIONS (1)
  - COLORECTAL CANCER [None]
